FAERS Safety Report 18787068 (Version 1)
Quarter: 2021Q1

REPORT INFORMATION
  Report Type: Other
  Country: US (occurrence: US)
  Receive Date: 20210126
  Receipt Date: 20210126
  Transmission Date: 20210419
  Serious: Yes (Other)
  Sender: FDA-Public Use
  Company Number: US-INTERCEPT-PM2021000005

PATIENT
  Age: 59 Year
  Sex: Female

DRUGS (16)
  1. METHOTREXATE. [Concomitant]
     Active Substance: METHOTREXATE
  2. VITAMIN K [Concomitant]
     Active Substance: PHYTONADIONE
  3. TYLENOL [Concomitant]
     Active Substance: ACETAMINOPHEN
  4. MULTIVITAMINS [VITAMINS NOS] [Concomitant]
     Active Substance: VITAMINS
  5. HYDROXYCHLOROQUINE SULFATE. [Concomitant]
     Active Substance: HYDROXYCHLOROQUINE SULFATE
  6. VITAMIN B COMPLEX WITH VITAMIN C [ASCORBIC ACID;VITAMIN B COMPLEX] [Concomitant]
  7. FENTANYL. [Concomitant]
     Active Substance: FENTANYL
  8. VENLAFAXINE HCL [Concomitant]
     Active Substance: VENLAFAXINE HYDROCHLORIDE
  9. ATORVASTATIN CALCIUM. [Concomitant]
     Active Substance: ATORVASTATIN CALCIUM
  10. VITAMIN E [Concomitant]
     Active Substance: .ALPHA.-TOCOPHEROL
  11. GABAPENTIN. [Concomitant]
     Active Substance: GABAPENTIN
  12. OCALIVA [Suspect]
     Active Substance: OBETICHOLIC ACID
     Indication: PRIMARY BILIARY CHOLANGITIS
     Dosage: 5 MILLIGRAM, QD
     Route: 048
     Dates: start: 20200808
  13. ALENDRONATE SODIUM. [Concomitant]
     Active Substance: ALENDRONATE SODIUM
  14. PEPCID [Concomitant]
     Active Substance: FAMOTIDINE
  15. OXYCODONE HYDROCHLORIDE. [Concomitant]
     Active Substance: OXYCODONE HYDROCHLORIDE
  16. PANTOPRAZOLE SODIUM. [Concomitant]
     Active Substance: PANTOPRAZOLE SODIUM

REACTIONS (2)
  - Cholangitis [Unknown]
  - Biliary dilatation [Unknown]

NARRATIVE: CASE EVENT DATE: 202012
